FAERS Safety Report 5874651-1 (Version None)
Quarter: 2008Q3

REPORT INFORMATION
  Report Type: 
  Country: None (occurrence: None)
  Receive Date: 20080902
  Receipt Date: 20080822
  Transmission Date: 20090109
  Serious: Yes (Hospitalization, Disabling)
  Sender: FDA-Public Use
  Company Number: 2008S1008584

PATIENT

DRUGS (1)
  1. PHOSPHOSODA FLAVOR NOT SPECIFIED  (SODIUM PHOSPHATE DIBASIC/SODIUM PHO [Suspect]
     Indication: COLONOSCOPY

REACTIONS (1)
  - RENAL FAILURE ACUTE [None]
